FAERS Safety Report 4881740-7 (Version None)
Quarter: 2006Q1

REPORT INFORMATION
  Report Type: 
  Country: None (occurrence: None)
  Receive Date: 20060116
  Receipt Date: 20050425
  Transmission Date: 20060701
  Serious: Yes (Death, Life-Threatening, Hospitalization)
  Sender: FDA-Public Use
  Company Number: CA-ROCHE-402821

PATIENT
  Age: 75 Year
  Sex: Female
  Weight: 54.8 kg

DRUGS (11)
  1. CAPECITABINE [Suspect]
     Route: 048
     Dates: start: 20050404, end: 20050516
  2. BEVACIZUMAB [Suspect]
     Route: 042
     Dates: start: 20050404, end: 20050516
  3. OXALIPLATIN [Suspect]
     Route: 042
     Dates: start: 20050404, end: 20050516
  4. VITAMIN E [Concomitant]
  5. ACTONEL [Concomitant]
  6. CALCIUM GLUCONATE [Concomitant]
  7. VITAMIN D [Concomitant]
  8. FLONASE [Concomitant]
  9. COMBIVENT [Concomitant]
     Dosage: P.R.N.
  10. ZOFRAN [Concomitant]
     Dates: start: 20050404
  11. DECADRON [Concomitant]
     Dates: start: 20050404

REACTIONS (8)
  - ABDOMINAL ADHESIONS [None]
  - ABDOMINAL DISTENSION [None]
  - ASPERGILLOSIS [None]
  - DEHYDRATION [None]
  - KLEBSIELLA INFECTION [None]
  - RESPIRATORY FAILURE [None]
  - SEPTIC SHOCK [None]
  - THROMBOCYTOPENIA [None]
